FAERS Safety Report 10879151 (Version 2)
Quarter: 2015Q1

REPORT INFORMATION
  Report Type: Report from Study
  Country: JP (occurrence: JP)
  Receive Date: 20150302
  Receipt Date: 20150304
  Transmission Date: 20150721
  Serious: No
  Sender: FDA-Public Use
  Company Number: JP-EISAI MEDICAL RESEARCH-EC-2014-002057

PATIENT
  Age: 65 Year
  Sex: Female

DRUGS (10)
  1. FERROMIA [Concomitant]
     Active Substance: FERROUS CITRATE
  2. PYDOXAL [Concomitant]
     Active Substance: PYRIDOXAL
  3. CEROCRAL [Concomitant]
     Active Substance: IFENPRODIL
  4. HERBESSER [Concomitant]
     Active Substance: DILTIAZEM HYDROCHLORIDE
  5. NITROL [Concomitant]
     Active Substance: NITROGLYCERIN
  6. ARICEPT [Suspect]
     Active Substance: DONEPEZIL HYDROCHLORIDE
     Indication: DEMENTIA ALZHEIMER^S TYPE
     Route: 048
     Dates: start: 20131002, end: 20131016
  7. HIBON [Concomitant]
     Active Substance: RIBOFLAVIN
  8. SERMION [Concomitant]
     Active Substance: NICERGOLINE
  9. ARICEPT [Suspect]
     Active Substance: DONEPEZIL HYDROCHLORIDE
     Route: 048
     Dates: start: 20131017, end: 20141018
  10. LIPOVAS [Concomitant]
     Active Substance: PRAVASTATIN SODIUM

REACTIONS (1)
  - Lipase increased [Recovered/Resolved]

NARRATIVE: CASE EVENT DATE: 20131218
